FAERS Safety Report 14449086 (Version 1)
Quarter: 2018Q1

REPORT INFORMATION
  Report Type: Spontaneous
  Country: FR (occurrence: FR)
  Receive Date: 20180126
  Receipt Date: 20180126
  Transmission Date: 20180509
  Serious: Yes (Other)
  Sender: FDA-Public Use
  Company Number: FR-BIOGEN-2018BI00517053

PATIENT
  Age: 31 Year
  Sex: Female
  Weight: 53.9 kg

DRUGS (1)
  1. TYSABRI [Suspect]
     Active Substance: NATALIZUMAB
     Indication: MULTIPLE SCLEROSIS
     Route: 042
     Dates: end: 201407

REACTIONS (1)
  - Anti-JC virus antibody index [Not Recovered/Not Resolved]

NARRATIVE: CASE EVENT DATE: 201407
